FAERS Safety Report 14953820 (Version 1)
Quarter: 2018Q2

REPORT INFORMATION
  Report Type: Spontaneous
  Country: US (occurrence: US)
  Receive Date: 20180530
  Receipt Date: 20180530
  Transmission Date: 20180711
  Serious: No
  Sender: FDA-Public Use
  Company Number: US-BAYER-2018-098452

PATIENT
  Sex: Female

DRUGS (8)
  1. ALEVE [Suspect]
     Active Substance: NAPROXEN SODIUM
     Indication: PAIN
     Dosage: ;1-2 CAPLETS DAILY
     Route: 048
  2. ALEVE [Concomitant]
     Active Substance: NAPROXEN SODIUM
     Route: 048
  3. VALSARTAN. [Concomitant]
     Active Substance: VALSARTAN
  4. ATORVASTATIN [Concomitant]
     Active Substance: ATORVASTATIN
  5. POTASSIUM [Concomitant]
     Active Substance: POTASSIUM
  6. BAYER LOW DOSE [Suspect]
     Active Substance: ASPIRIN
     Indication: COLON CANCER
     Dosage: 1 DF, QD
     Route: 048
  7. BAYER LOW DOSE [Suspect]
     Active Substance: ASPIRIN
     Indication: CARDIAC DISORDER
  8. AMLODIPINE [Concomitant]
     Active Substance: AMLODIPINE BESYLATE

REACTIONS (4)
  - Off label use [Unknown]
  - Product prescribing issue [Unknown]
  - Product use issue [Unknown]
  - Product use in unapproved indication [Unknown]
